APPROVED DRUG PRODUCT: APTIVUS
Active Ingredient: TIPRANAVIR
Strength: 100MG/ML
Dosage Form/Route: SOLUTION;ORAL
Application: N022292 | Product #001
Applicant: BOEHRINGER INGELHEIM PHARMACEUTICALS INC
Approved: Jun 23, 2008 | RLD: Yes | RS: No | Type: DISCN